FAERS Safety Report 10170475 (Version 1)
Quarter: 2014Q2

REPORT INFORMATION
  Report Type: Spontaneous
  Country: US (occurrence: US)
  Receive Date: 20140513
  Receipt Date: 20140513
  Transmission Date: 20141212
  Serious: No
  Sender: FDA-Public Use
  Company Number: US-009507513-1405USA006338

PATIENT
  Sex: Female

DRUGS (1)
  1. OXYTROL FOR WOMEN [Suspect]
     Indication: POLLAKIURIA
     Dosage: UNK, Q4D
     Route: 062
     Dates: start: 20140416

REACTIONS (3)
  - Constipation [Unknown]
  - Urine output decreased [Unknown]
  - Drug ineffective [Unknown]
